FAERS Safety Report 9710255 (Version 3)
Quarter: 2014Q2

REPORT INFORMATION
  Report Type: Spontaneous
  Country: US (occurrence: US)
  Receive Date: 20131126
  Receipt Date: 20140510
  Transmission Date: 20141212
  Serious: No
  Sender: FDA-Public Use
  Company Number: US-BRISTOL-MYERS SQUIBB COMPANY-18703413

PATIENT
  Age: 64 Year
  Sex: Female
  Weight: 111.57 kg

DRUGS (9)
  1. BYDUREON [Suspect]
     Indication: TYPE 2 DIABETES MELLITUS
     Dosage: LOT#73483,EXPDT:30APR16
     Route: 058
     Dates: start: 20121213
  2. BYETTA [Suspect]
  3. GLUCOPHAGE [Suspect]
     Dosage: 1DF:750 UNIT NOS
  4. METFORMIN HCL [Concomitant]
     Indication: TYPE 2 DIABETES MELLITUS
     Route: 048
  5. LANTUS [Concomitant]
  6. INSULIN [Concomitant]
  7. NOVOLOG [Concomitant]
  8. WELCHOL [Concomitant]
     Indication: BLOOD CHOLESTEROL
     Route: 048
  9. SYMLIN [Concomitant]

REACTIONS (12)
  - Nausea [Recovered/Resolved]
  - Dyspepsia [Recovered/Resolved]
  - Diabetes mellitus inadequate control [Recovering/Resolving]
  - Gastrooesophageal reflux disease [Not Recovered/Not Resolved]
  - Diarrhoea [Recovered/Resolved]
  - Weight decreased [Not Recovered/Not Resolved]
  - Injection site haemorrhage [Recovered/Resolved]
  - Decreased appetite [Unknown]
  - Vomiting [Recovered/Resolved]
  - Abdominal distension [Recovering/Resolving]
  - Injection site extravasation [Unknown]
  - Product quality issue [Unknown]
